FAERS Safety Report 21016275 (Version 1)
Quarter: 2022Q2

REPORT INFORMATION
  Report Type: Spontaneous
  Country: US (occurrence: US)
  Receive Date: 20220628
  Receipt Date: 20220628
  Transmission Date: 20220721
  Serious: Yes (Other)
  Sender: FDA-Public Use
  Company Number: US-AMGEN-USASP2022107413

PATIENT
  Age: 19 Year
  Sex: Female

DRUGS (2)
  1. NEUPOGEN [Suspect]
     Active Substance: FILGRASTIM
     Indication: Product used for unknown indication
     Dosage: UNK
     Route: 065
  2. TAMOXIFEN [Concomitant]
     Active Substance: TAMOXIFEN

REACTIONS (4)
  - Calcinosis [Unknown]
  - Encapsulating peritoneal sclerosis [Unknown]
  - Nephrocalcinosis [Unknown]
  - Leukocytosis [Unknown]
